FAERS Safety Report 11637932 (Version 5)
Quarter: 2016Q4

REPORT INFORMATION
  Report Type: Spontaneous
  Country: US (occurrence: US)
  Receive Date: 20151016
  Receipt Date: 20161109
  Transmission Date: 20170206
  Serious: Yes (Disabling, Other)
  Sender: FDA-Public Use
  Company Number: US-BAYER-2015-446194

PATIENT
  Age: 35 Year
  Sex: Female

DRUGS (4)
  1. BETASERON [Suspect]
     Active Substance: INTERFERON BETA-1B
     Indication: MULTIPLE SCLEROSIS
     Dosage: 0.3 MG, QOD
     Route: 058
  2. BETASERON [Suspect]
     Active Substance: INTERFERON BETA-1B
     Indication: MULTIPLE SCLEROSIS
     Dosage: 0.3 MG, QOD
     Route: 058
  3. BETASERON [Suspect]
     Active Substance: INTERFERON BETA-1B
     Indication: MULTIPLE SCLEROSIS
     Dosage: 1 ML, QOD
     Route: 058
     Dates: start: 201011
  4. BETASERON [Suspect]
     Active Substance: INTERFERON BETA-1B
     Indication: MULTIPLE SCLEROSIS
     Dosage: 0.3 MG, QD
     Route: 058
     Dates: start: 20160528

REACTIONS (10)
  - Fall [None]
  - Pyrexia [Recovering/Resolving]
  - Limb discomfort [None]
  - Pyrexia [None]
  - Vomiting [None]
  - Arthropathy [None]
  - Nausea [Recovering/Resolving]
  - Nausea [None]
  - Hypoaesthesia [None]
  - Drug dose omission [None]

NARRATIVE: CASE EVENT DATE: 2015
